FAERS Safety Report 7990451 (Version 5)
Quarter: 2013Q4

REPORT INFORMATION
  Report Type: Spontaneous
  Country: FR (occurrence: FR)
  Receive Date: 20110614
  Receipt Date: 20131220
  Transmission Date: 20140711
  Serious: Yes (Hospitalization)
  Sender: FDA-Public Use
  Company Number: FR-MERCK-1007FRA00090

PATIENT
  Age: 44 Year
  Sex: Male

DRUGS (20)
  1. JANUVIA [Suspect]
     Indication: TYPE 2 DIABETES MELLITUS
     Dosage: 100 MG, QD
     Route: 048
     Dates: start: 2010, end: 20110305
  2. JANUVIA [Suspect]
     Dosage: 100 MG, QD
     Route: 048
     Dates: start: 20100703, end: 20101110
  3. JANUVIA [Suspect]
     Dosage: 100 MG, QD
     Route: 048
     Dates: start: 2011, end: 201106
  4. JANUVIA [Suspect]
     Dosage: 100 MG, QD
     Route: 048
     Dates: start: 2012
  5. JANUVIA [Suspect]
     Dosage: UNK
     Route: 048
     Dates: start: 2013
  6. DIAMICRON [Suspect]
     Indication: TYPE 2 DIABETES MELLITUS
     Route: 048
     Dates: start: 201006, end: 201006
  7. ACTOS [Concomitant]
     Dates: end: 20100702
  8. LEXOMIL [Concomitant]
  9. LYSANXIA [Concomitant]
  10. FORLAX [Concomitant]
     Dates: end: 2010
  11. MAG 2 [Concomitant]
     Dates: end: 2010
  12. TRUSOPT [Concomitant]
  13. OPATANOL [Concomitant]
  14. HERBS (UNSPECIFIED) [Concomitant]
  15. GAVISCON ANTACID TABLETS [Concomitant]
     Route: 048
  16. STAGID [Concomitant]
  17. CETIRIZINE HYDROCHLORIDE [Concomitant]
  18. LACTULOSE [Concomitant]
  19. MOPRAL (OMEPRAZOLE) [Concomitant]
  20. CHOLINE DIHYDROGEN CITRATE (+) MAGNESIUM CITRATE (+) SODIUM CITRATE [Concomitant]

REACTIONS (18)
  - Hypoglycaemia [Recovered/Resolved]
  - Angina pectoris [Recovered/Resolved]
  - Arthralgia [Recovered/Resolved]
  - Pain in extremity [Not Recovered/Not Resolved]
  - Fatigue [Recovered/Resolved]
  - Rash [Recovered/Resolved]
  - Angina pectoris [Recovered/Resolved]
  - Abdominal pain upper [Recovered/Resolved]
  - Abdominal pain upper [Not Recovered/Not Resolved]
  - Abdominal pain upper [Not Recovered/Not Resolved]
  - Musculoskeletal pain [Not Recovered/Not Resolved]
  - Liver tenderness [Not Recovered/Not Resolved]
  - Hepatic pain [Not Recovered/Not Resolved]
  - Burning sensation [Not Recovered/Not Resolved]
  - Burning sensation [Recovered/Resolved]
  - Burning sensation [Unknown]
  - Constipation [Unknown]
  - Constipation [Unknown]
